FAERS Safety Report 21964817 (Version 2)
Quarter: 2023Q1

REPORT INFORMATION
  Report Type: Report from Study
  Country: CN (occurrence: CN)
  Receive Date: 20230207
  Receipt Date: 20230214
  Transmission Date: 20230418
  Serious: Yes (Life-Threatening, Other)
  Sender: FDA-Public Use
  Company Number: CN-GILEAD-2023-0615648

PATIENT
  Age: 67 Year
  Sex: Male
  Weight: 72 kg

DRUGS (6)
  1. TENOFOVIR ALAFENAMIDE [Suspect]
     Active Substance: TENOFOVIR ALAFENAMIDE
     Indication: Hepatitis B
     Dosage: 1 DOSAGE FORM, QD
     Route: 048
     Dates: start: 20230131, end: 20230206
  2. BENIDIPINE HYDROCHLORIDE [Concomitant]
     Active Substance: BENIDIPINE HYDROCHLORIDE
  3. METOPROLOL TARTRATE [Concomitant]
     Active Substance: METOPROLOL TARTRATE
  4. LINAGLIPTIN [Concomitant]
     Active Substance: LINAGLIPTIN
  5. VOGLIBOSE [Concomitant]
     Active Substance: VOGLIBOSE
  6. INSULIN LISPRO [Concomitant]
     Active Substance: INSULIN LISPRO

REACTIONS (2)
  - Cardiogenic shock [Not Recovered/Not Resolved]
  - Acute myocardial infarction [Not Recovered/Not Resolved]

NARRATIVE: CASE EVENT DATE: 20230202
